FAERS Safety Report 7203391-1 (Version None)
Quarter: 2010Q4

REPORT INFORMATION
  Report Type: 
  Country: None (occurrence: None)
  Receive Date: 20101220
  Receipt Date: 20101203
  Transmission Date: 20110411
  Serious: Yes (Disabling, Other)
  Sender: FDA-Public Use
  Company Number: ACO_20212_2010

PATIENT
  Age: 68 Year
  Sex: Female
  Weight: 68 kg

DRUGS (4)
  1. AMPYRA [Suspect]
     Indication: GAIT DISTURBANCE
     Dosage: 10 MG, BID, ORAL
     Route: 048
     Dates: start: 20101017, end: 20101101
  2. STATIN /00084401/ [Concomitant]
  3. ANTIDEPRESSANTS [Concomitant]
  4. VITAMINS /90003601/ [Concomitant]

REACTIONS (8)
  - BEDRIDDEN [None]
  - CONDITION AGGRAVATED [None]
  - GAIT DISTURBANCE [None]
  - PARAESTHESIA [None]
  - PARALYSIS [None]
  - PERIPHERAL COLDNESS [None]
  - SENSATION OF HEAVINESS [None]
  - THERAPEUTIC RESPONSE DECREASED [None]
